FAERS Safety Report 8232222-6 (Version None)
Quarter: 2012Q1

REPORT INFORMATION
  Report Type: 
  Country: None (occurrence: None)
  Receive Date: 20120323
  Receipt Date: 20120320
  Transmission Date: 20120608
  Serious: Yes (Other)
  Sender: FDA-Public Use
  Company Number: US-BRACCO-007739

PATIENT
  Age: 41 Year
  Sex: Female

DRUGS (2)
  1. ISOVUE-370 [Suspect]
     Indication: CATHETERISATION CARDIAC
     Route: 013
     Dates: start: 20120101, end: 20120101
  2. ISOVUE-370 [Suspect]
     Indication: TROPONIN INCREASED
     Route: 013
     Dates: start: 20120101, end: 20120101

REACTIONS (3)
  - ELECTROCARDIOGRAM ST SEGMENT ELEVATION [None]
  - BLOOD PRESSURE DECREASED [None]
  - HEART RATE DECREASED [None]
